FAERS Safety Report 8825903 (Version 3)
Quarter: 2013Q1

REPORT INFORMATION
  Report Type: Report from Study
  Country: US (occurrence: US)
  Receive Date: 20121005
  Receipt Date: 20130220
  Transmission Date: 20140127
  Serious: Yes (Hospitalization)
  Sender: FDA-Public Use
  Company Number: US-VERTEX PHARMACEUTICAL INC.-2012-022383

PATIENT
  Age: 56 Year
  Sex: Female
  Weight: 61.69 kg

DRUGS (9)
  1. VX-950 (TELAPREVIR) [Suspect]
     Indication: HEPATITIS C
     Dosage: 750 MG, TID
     Route: 048
     Dates: start: 20120810, end: 20121009
  2. RIBAVIRIN [Suspect]
     Indication: HEPATITIS C
     Dosage: DOSAGE FORM: TABLET, 3 DOSES IN THE AM AND 2 IN THE PM
     Route: 048
     Dates: start: 20120810, end: 20120823
  3. RIBAVIRIN [Suspect]
     Dosage: DOSAGE FORM: TABLET, 2 DOSES IN THE AM AND 1 IN THE PM
     Route: 048
     Dates: start: 20120824, end: 20120921
  4. PEGINTERFERON ALFA-2A [Suspect]
     Indication: HEPATITIS C
     Dosage: DOSAGE FORM: INJECTION
     Route: 058
     Dates: start: 20120810, end: 20120928
  5. LISINOPRIL [Concomitant]
     Indication: HYPERTENSION
     Dosage: 40 MG, QD
     Route: 048
  6. PLAVIX [Concomitant]
     Indication: TRANSIENT ISCHAEMIC ATTACK
     Route: 048
  7. DURAGESIC [Concomitant]
     Indication: VASCULITIS
     Dosage: DOSAGE FORM: PATCH, EVERY 72 HRS
     Route: 062
  8. LORTAB [Concomitant]
     Indication: VASCULITIS
     Dosage: 500.1 MG, TID
     Route: 048
  9. TOPROL XL [Concomitant]
     Indication: HYPERTENSION
     Dosage: 100 MG, QD
     Route: 048

REACTIONS (1)
  - Anaemia [Recovered/Resolved]
